FAERS Safety Report 15685998 (Version 1)
Quarter: 2018Q4

REPORT INFORMATION
  Report Type: Spontaneous
  Country: US (occurrence: US)
  Receive Date: 20181204
  Receipt Date: 20181204
  Transmission Date: 20190205
  Serious: No
  Sender: FDA-Public Use
  Company Number: US-SA-2018SA328695

PATIENT
  Age: 19 Year
  Sex: Female

DRUGS (2)
  1. MYCOPHENOLATE [Concomitant]
     Active Substance: MYCOPHENOLIC ACID
  2. DUPIXENT [Suspect]
     Active Substance: DUPILUMAB
     Indication: DERMATITIS ATOPIC
     Dosage: UNK
     Dates: start: 201803

REACTIONS (6)
  - Constipation [Unknown]
  - Dermatitis atopic [Recovered/Resolved]
  - Stress at work [Unknown]
  - Poor quality sleep [Unknown]
  - Eosinophil count increased [Unknown]
  - Conjunctivitis [Unknown]
